FAERS Safety Report 8230119-9 (Version None)
Quarter: 2012Q1

REPORT INFORMATION
  Report Type: 
  Country: None (occurrence: None)
  Receive Date: 20120323
  Receipt Date: 20120319
  Transmission Date: 20120608
  Serious: No
  Sender: FDA-Public Use
  Company Number: US-PFIZER INC-2012071616

PATIENT
  Sex: Female
  Weight: 72.11 kg

DRUGS (4)
  1. NORVASC [Concomitant]
     Indication: HYPERTENSION
     Dosage: UNK
  2. COZAAR [Concomitant]
     Indication: HYPERTENSION
     Dosage: UNK
  3. TIKOSYN [Suspect]
     Indication: ATRIAL FIBRILLATION
     Dosage: 250 UG, 2X/DAY
     Route: 048
     Dates: start: 20111201
  4. PRADAXA [Concomitant]
     Indication: HYPERTENSION
     Dosage: UNK

REACTIONS (1)
  - COUGH [None]
